FAERS Safety Report 8858863 (Version 1)
Quarter: 2012Q4

REPORT INFORMATION
  Report Type: 
  Country: US (occurrence: US)
  Receive Date: 20121024
  Receipt Date: 20121024
  Transmission Date: 20130627
  Serious: No
  Sender: FDA-Public Use
  Company Number: US-PFIZER INC-2012260523

PATIENT
  Sex: Male

DRUGS (3)
  1. TIKOSYN [Suspect]
     Dosage: UNK
  2. NIACIN [Suspect]
     Dosage: 250/250
  3. NIACIN [Suspect]
     Dosage: 500/500

REACTIONS (2)
  - Headache [Unknown]
  - Hyperhidrosis [Unknown]
